FAERS Safety Report 25264539 (Version 1)
Quarter: 2025Q2

REPORT INFORMATION
  Report Type: Other
  Country: US (occurrence: US)
  Receive Date: 20250502
  Receipt Date: 20250502
  Transmission Date: 20250717
  Serious: Yes (Other)
  Sender: EMD SERONO INC
  Company Number: US-Merck Healthcare KGaA-2024043715

PATIENT
  Age: 62 Year
  Sex: Male
  Weight: 132 kg

DRUGS (4)
  1. LEVOTHYROXINE [Suspect]
     Active Substance: LEVOTHYROXINE
     Indication: Autoimmune hypothyroidism
  2. TIRZEPATIDE [Suspect]
     Active Substance: TIRZEPATIDE
     Indication: Obesity
     Dosage: INCREASED DOSE EVERY 4 WEEKS UP TO 15 MG WEEKLY
  3. TIRZEPATIDE [Suspect]
     Active Substance: TIRZEPATIDE
  4. INSULIN NOS [Concomitant]
     Active Substance: INSULIN NOS
     Indication: Type 1 diabetes mellitus
     Dosage: MULTIPLE DAILY INSULIN INJECTIONS

REACTIONS (4)
  - Confusional state [Unknown]
  - Atrial fibrillation [Unknown]
  - Hyperthyroidism [Unknown]
  - Increased dose administered [Unknown]
